FAERS Safety Report 4396465-4 (Version None)
Quarter: 2004Q2

REPORT INFORMATION
  Report Type: 
  Country: None (occurrence: None)
  Receive Date: 20040621
  Receipt Date: 20021205
  Transmission Date: 20050107
  Serious: Yes (Other)
  Sender: FDA-Public Use
  Company Number: USA-2002-0003403

PATIENT
  Age: 17 Year
  Sex: Male
  Weight: 63.5 kg

DRUGS (9)
  1. OXYCONTIN [Suspect]
     Indication: PAIN
     Dosage: 40 MG, DAILY, ORAL
     Route: 048
     Dates: start: 20000815, end: 20001013
  2. OXYCONTIN [Suspect]
     Indication: PAIN
     Dosage: 20 MG, BID, ORAL
     Route: 048
     Dates: start: 20001020, end: 20001121
  3. OXYCONTIN [Suspect]
     Indication: PAIN
     Dosage: 10 MG, BID, ORAL
     Route: 048
     Dates: start: 20001121, end: 20010101
  4. FLEXERIL [Concomitant]
  5. PEPCID [Concomitant]
  6. ZANAFLEX [Concomitant]
  7. PAXIL [Concomitant]
  8. ZOLOFT [Concomitant]
  9. EFFEXOR [Concomitant]

REACTIONS (10)
  - ANXIETY [None]
  - CHILLS [None]
  - COUGH [None]
  - DEPRESSION [None]
  - DRUG DEPENDENCE [None]
  - DRUG INEFFECTIVE [None]
  - DRUG WITHDRAWAL SYNDROME [None]
  - NAUSEA [None]
  - PAIN [None]
  - PYREXIA [None]
